FAERS Safety Report 24269271 (Version 1)
Quarter: 2024Q3

REPORT INFORMATION
  Report Type: Spontaneous
  Country: US (occurrence: None)
  Receive Date: 20240830
  Receipt Date: 20240830
  Transmission Date: 20241016
  Serious: No
  Sender: Public
  Company Number: None

PATIENT
  Age: 66 Year
  Sex: Male

DRUGS (4)
  1. PRALUENT [Suspect]
     Active Substance: ALIROCUMAB
     Indication: Dyslipidaemia
     Dosage: 1 ML Q 2 WEEKS SUBCUTANEOUS
     Route: 058
  2. GLIPIZIDE [Concomitant]
     Active Substance: GLIPIZIDE
  3. METFORMIN HYDROCHLORIDE [Concomitant]
     Active Substance: METFORMIN HYDROCHLORIDE
  4. COZAAR 25MG TABLETS [Concomitant]

REACTIONS (6)
  - Myalgia [None]
  - Arthralgia [None]
  - Pain in jaw [None]
  - Dyspepsia [None]
  - Sneezing [None]
  - Hypophagia [None]

NARRATIVE: CASE EVENT DATE: 20240826
